FAERS Safety Report 6042106-X (Version None)
Quarter: 2009Q1

REPORT INFORMATION
  Report Type: 
  Country: None (occurrence: None)
  Receive Date: 20090116
  Receipt Date: 20090107
  Transmission Date: 20090719
  Serious: Yes (Other)
  Sender: FDA-Public Use
  Company Number: PHEH2009US00641

PATIENT
  Sex: Female

DRUGS (6)
  1. AREDIA [Suspect]
     Indication: BREAST CANCER
     Dosage: 90 MG, QMO
     Dates: start: 20050201, end: 20060101
  2. ZOMETA [Suspect]
     Indication: BREAST CANCER
     Dosage: 4 MG, QMO
     Dates: start: 20060201
  3. NEULASTA [Concomitant]
  4. AVASTIN [Concomitant]
  5. ABRAXANE [Concomitant]
  6. ARANESP [Concomitant]

REACTIONS (2)
  - BONE DISORDER [None]
  - IMPAIRED HEALING [None]
